FAERS Safety Report 6255950-0 (Version None)
Quarter: 2009Q3

REPORT INFORMATION
  Report Type: 
  Country: None (occurrence: None)
  Receive Date: 20090706
  Receipt Date: 20090702
  Transmission Date: 20100115
  Serious: Yes (Hospitalization)
  Sender: FDA-Public Use
  Company Number: US-BRISTOL-MYERS SQUIBB COMPANY-14682868

PATIENT
  Sex: Female

DRUGS (2)
  1. AMPICILLIN [Suspect]
     Indication: SEPSIS
     Route: 042
  2. CEFOTAXIME [Suspect]
     Indication: SEPSIS
     Route: 042

REACTIONS (1)
  - CHOLELITHIASIS [None]
